FAERS Safety Report 11440076 (Version 1)
Quarter: 2015Q3

REPORT INFORMATION
  Report Type: Spontaneous
  Country: US (occurrence: US)
  Receive Date: 20150901
  Receipt Date: 20150901
  Transmission Date: 20151125
  Serious: Yes (Hospitalization, Other)
  Sender: FDA-Public Use
  Company Number: US-ROCHE-1146191

PATIENT
  Age: 62 Year
  Sex: Male
  Weight: 77.63 kg

DRUGS (5)
  1. PEGASYS [Suspect]
     Active Substance: PEGINTERFERON ALFA-2A
     Indication: HEPATITIS C
     Route: 058
     Dates: start: 20120905, end: 20121015
  2. TELAPREVIR [Suspect]
     Active Substance: TELAPREVIR
     Indication: HEPATITIS C
     Route: 048
     Dates: start: 20120905, end: 20121003
  3. DOXEPIN [Concomitant]
     Active Substance: DOXEPIN
     Route: 065
  4. COPEGUS [Suspect]
     Active Substance: RIBAVIRIN
     Indication: HEPATITIS C
     Route: 048
     Dates: start: 20120905, end: 20121015
  5. ATENOLOL. [Concomitant]
     Active Substance: ATENOLOL
     Route: 065

REACTIONS (8)
  - Dyspnoea [Unknown]
  - Productive cough [Unknown]
  - Pyrexia [Unknown]
  - Injection site rash [Unknown]
  - Chest pain [Unknown]
  - Respiratory tract congestion [Unknown]
  - Wheezing [Unknown]
  - Chills [Unknown]

NARRATIVE: CASE EVENT DATE: 20120905
